FAERS Safety Report 10238493 (Version 1)
Quarter: 2014Q2

REPORT INFORMATION
  Report Type: Spontaneous
  Country: FR (occurrence: FR)
  Receive Date: 20140616
  Receipt Date: 20140616
  Transmission Date: 20141212
  Serious: Yes (Hospitalization)
  Sender: FDA-Public Use
  Company Number: FR-SA-2014SA073664

PATIENT
  Age: 61 Year
  Sex: Male

DRUGS (9)
  1. RIFINAH [Suspect]
     Indication: TUBERCULOSIS
     Dosage: DOSE:2 UNIT(S)
     Route: 048
     Dates: start: 20130527, end: 20130617
  2. CIMZIA [Suspect]
     Indication: RHEUMATOID ARTHRITIS
     Dosage: 2 INJECTIONS EVERY 14 DAYS DURING 45 DAYS THEN 1 INJECTION EVERY 14 DAYS
     Route: 065
     Dates: start: 20130617, end: 201401
  3. METOJECT [Concomitant]
     Indication: RHEUMATOID ARTHRITIS
     Dosage: 1 UNIT BY WEEK DOSE:1 UNIT(S)
     Route: 051
     Dates: end: 201402
  4. SPECIAFOLDINE [Concomitant]
     Dosage: DOSE:2 UNIT(S)
     Route: 048
  5. CORTANCYL [Concomitant]
     Dosage: DOSE:1 UNIT(S)
     Route: 048
     Dates: end: 20140402
  6. INEXIUM [Concomitant]
     Dosage: DOSE:1 UNIT(S)
  7. CARDENSIEL [Concomitant]
     Dosage: DOSE:1 UNIT(S)
  8. PLAVIX [Concomitant]
     Dosage: DOSE:1 UNIT(S)
  9. TAHOR [Concomitant]
     Dosage: DOSE:2 UNIT(S)

REACTIONS (5)
  - Pulmonary tuberculosis [Recovering/Resolving]
  - Cough [Recovering/Resolving]
  - Pyrexia [Recovering/Resolving]
  - General physical health deterioration [Recovering/Resolving]
  - Intentional product misuse [Unknown]
